FAERS Safety Report 14416783 (Version 1)
Quarter: 2018Q1

REPORT INFORMATION
  Report Type: Spontaneous
  Country: US (occurrence: US)
  Receive Date: 20180119
  Receipt Date: 20180119
  Transmission Date: 20180509
  Serious: Yes (Hospitalization)
  Sender: FDA-Public Use
  Company Number: None

PATIENT
  Age: 48 Year
  Sex: Male

DRUGS (4)
  1. VANCOMYCIN [Suspect]
     Active Substance: VANCOMYCIN
     Indication: INFECTION
     Route: 042
     Dates: start: 20170703, end: 20170709
  2. ASPIRIN. [Concomitant]
     Active Substance: ASPIRIN
  3. IBUPROFEN. [Concomitant]
     Active Substance: IBUPROFEN
  4. ESOMEPRAZOLE [Concomitant]
     Active Substance: ESOMEPRAZOLE

REACTIONS (2)
  - Therapy change [None]
  - Rash erythematous [None]

NARRATIVE: CASE EVENT DATE: 20170709
